FAERS Safety Report 17253390 (Version 2)
Quarter: 2020Q1

REPORT INFORMATION
  Report Type: Spontaneous
  Country: FR (occurrence: FR)
  Receive Date: 20200109
  Receipt Date: 20200311
  Transmission Date: 20200409
  Serious: Yes (Death, Hospitalization, Other)
  Sender: FDA-Public Use
  Company Number: FR-MYLANLABS-2020M1001849

PATIENT
  Age: 61 Year

DRUGS (2)
  1. PACLITAXEL. [Suspect]
     Active Substance: PACLITAXEL
     Indication: SQUAMOUS CELL CARCINOMA
     Dosage: 60 MILLIGRAM/SQ. METER, CYCLE (60 MILLIGRAM/SQ. METER, CYCLICAL  ON D1-D8-D15)
     Route: 065
     Dates: start: 20141010
  2. CARBOPLATIN. [Suspect]
     Active Substance: CARBOPLATIN
     Indication: SQUAMOUS CELL CARCINOMA
     Dosage: UNK UNK, CYCLE (UNK UNK, CYCLICAL AUC 2)
     Route: 065

REACTIONS (8)
  - Squamous cell carcinoma [Fatal]
  - Visual acuity reduced [Recovering/Resolving]
  - Posterior reversible encephalopathy syndrome [Unknown]
  - Headache [Unknown]
  - General physical health deterioration [Unknown]
  - Eye pain [Unknown]
  - Candida sepsis [Recovered/Resolved]
  - Malignant neoplasm progression [Fatal]

NARRATIVE: CASE EVENT DATE: 201411
